FAERS Safety Report 9850312 (Version 1)
Quarter: 2014Q1

REPORT INFORMATION
  Report Type: Spontaneous
  Country: BE (occurrence: BE)
  Receive Date: 20140128
  Receipt Date: 20140128
  Transmission Date: 20141002
  Serious: Yes (Life-Threatening, Other)
  Sender: FDA-Public Use
  Company Number: BE-GLAXOSMITHKLINE-B0963971A

PATIENT
  Age: 89 Year
  Sex: Female
  Weight: 55 kg

DRUGS (15)
  1. ZOVIRAX [Suspect]
     Indication: HERPES ZOSTER
     Dosage: 500MG THREE TIMES PER DAY
     Route: 042
     Dates: start: 20131009, end: 20131011
  2. ASAFLOW [Concomitant]
     Indication: CEREBROVASCULAR ACCIDENT
     Dosage: 80MG PER DAY
     Route: 048
  3. FRESENIUS [Concomitant]
     Indication: PAIN
     Dosage: 1G FOUR TIMES PER DAY
     Route: 042
     Dates: start: 20131009, end: 20131015
  4. CALCIUM CARBONATE + CHOLECALCIFEROL [Concomitant]
     Indication: OSTEOPOROSIS
     Route: 048
  5. AUGMENTIN [Concomitant]
     Indication: SUPERINFECTION BACTERIAL
     Dosage: 1G FOUR TIMES PER DAY
     Route: 042
     Dates: start: 20131009, end: 20131018
  6. MEDROL [Concomitant]
     Indication: RHEUMATOID ARTHRITIS
     Dosage: 1MG PER DAY
     Route: 048
     Dates: start: 20130910
  7. ARICEPT [Concomitant]
     Indication: DEMENTIA ALZHEIMER^S TYPE
     Dosage: 10MG PER DAY
     Route: 048
  8. GLUCOSE 5% + NACL 0.45% [Concomitant]
     Indication: FLUID REPLACEMENT
     Dosage: 1000ML PER DAY
     Route: 042
     Dates: start: 20131009, end: 20131015
  9. LEDERTREXATE [Concomitant]
     Indication: RHEUMATOID ARTHRITIS
     Dosage: 10MG WEEKLY
     Route: 048
  10. FOLIC ACID [Concomitant]
     Indication: PROPHYLAXIS
     Dosage: 4MG WEEKLY
     Route: 048
  11. AACIFEMINE [Concomitant]
     Indication: CEREBROVASCULAR ACCIDENT
     Dosage: 2MG WEEKLY
     Route: 048
  12. HALDOL [Concomitant]
     Indication: GAIT DISTURBANCE
     Dosage: 5DROP TWICE PER DAY
     Route: 048
  13. CONTRAMAL [Concomitant]
     Indication: PAIN
     Dosage: 7DROP THREE TIMES PER DAY
     Route: 048
     Dates: start: 20131006
  14. TEMESTA [Concomitant]
     Indication: INSOMNIA
     Route: 048
  15. FOSAMAX [Concomitant]
     Indication: OSTEOPOROSIS
     Dates: start: 2002

REACTIONS (3)
  - Renal failure acute [Recovered/Resolved]
  - Pancytopenia [Recovered/Resolved]
  - Disseminated intravascular coagulation [Recovered/Resolved]
